FAERS Safety Report 24369718 (Version 1)
Quarter: 2024Q3

REPORT INFORMATION
  Report Type: Spontaneous
  Country: US (occurrence: US)
  Receive Date: 20240927
  Receipt Date: 20240927
  Transmission Date: 20241017
  Serious: Yes (Hospitalization, Other)
  Sender: STRIDES
  Company Number: US-STRIDES PHARMA UK LTD.-2024SP011405

PATIENT

DRUGS (10)
  1. IBUPROFEN [Suspect]
     Active Substance: IBUPROFEN
     Indication: Product used for unknown indication
     Dosage: UNK
     Route: 065
  2. LETROZOLE [Suspect]
     Active Substance: LETROZOLE
     Indication: Ovulation induction
     Dosage: 10 MILLIGRAM, AT BED TIME (TABLET)
     Route: 065
  3. CETIRIZINE [Suspect]
     Active Substance: CETIRIZINE HYDROCHLORIDE
     Indication: Eustachian tube dysfunction
     Dosage: UNK
     Route: 065
  4. METFORMIN [Suspect]
     Active Substance: METFORMIN HYDROCHLORIDE
     Indication: Ovarian hyperstimulation syndrome
     Dosage: UNK
     Route: 065
  5. ONDANSETRON [Concomitant]
     Active Substance: ONDANSETRON
     Indication: Nausea
     Dosage: UNK
     Route: 065
  6. FOLLITROPIN ALFA [Concomitant]
     Active Substance: FOLLITROPIN ALFA
     Indication: Ovulation induction
     Dosage: UNK
     Route: 065
  7. MENOTROPINS [Concomitant]
     Active Substance: MENOTROPINS
     Indication: Ovulation induction
     Dosage: UNK
     Route: 065
  8. GANIRELIX ACETATE [Concomitant]
     Active Substance: GANIRELIX ACETATE
     Indication: Ovulation induction
     Dosage: UNK
     Route: 065
  9. BROMOCRIPTINE [Concomitant]
     Active Substance: BROMOCRIPTINE
     Indication: Ovarian hyperstimulation syndrome
     Dosage: UNK
     Route: 065
  10. AMOXICILLIN\CLAVULANIC ACID [Concomitant]
     Active Substance: AMOXICILLIN\CLAVULANIC ACID
     Indication: Eustachian tube dysfunction
     Dosage: UNK
     Route: 065

REACTIONS (3)
  - Gastritis [Unknown]
  - Treatment failure [Unknown]
  - Off label use [Unknown]
